FAERS Safety Report 13877882 (Version 1)
Quarter: 2017Q3

REPORT INFORMATION
  Report Type: Spontaneous
  Country: US (occurrence: US)
  Receive Date: 20170817
  Receipt Date: 20170817
  Transmission Date: 20171127
  Serious: Yes (Other)
  Sender: FDA-Public Use
  Company Number: PHHY2017US118126

PATIENT
  Age: 61 Year
  Sex: Female

DRUGS (6)
  1. SALMETEROL [Concomitant]
     Active Substance: SALMETEROL
     Indication: PRODUCT USED FOR UNKNOWN INDICATION
     Dosage: 50 UG, BID
     Route: 055
  2. VORICONAZOLE. [Interacting]
     Active Substance: VORICONAZOLE
     Dosage: 100 MG, BID
     Route: 065
  3. VORICONAZOLE. [Suspect]
     Active Substance: VORICONAZOLE
     Indication: PRODUCT USED FOR UNKNOWN INDICATION
     Dosage: 200 MG, BID
     Route: 048
  4. MOMETASONE [Interacting]
     Active Substance: MOMETASONE
     Indication: PRODUCT USED FOR UNKNOWN INDICATION
     Dosage: 50 UG, QD
     Route: 045
  5. ESOMEPRAZOLE [Concomitant]
     Active Substance: ESOMEPRAZOLE
     Indication: PRODUCT USED FOR UNKNOWN INDICATION
     Dosage: 40 MG, QD
     Route: 048
  6. FLUTICASONE. [Interacting]
     Active Substance: FLUTICASONE
     Indication: PRODUCT USED FOR UNKNOWN INDICATION
     Dosage: 500 UG, BID
     Route: 055

REACTIONS (3)
  - Drug interaction [Unknown]
  - Adrenal insufficiency [Unknown]
  - Cushing^s syndrome [Unknown]
